FAERS Safety Report 21862075 (Version 1)
Quarter: 2023Q1

REPORT INFORMATION
  Report Type: Report from Study
  Country: BR (occurrence: BR)
  Receive Date: 20230113
  Receipt Date: 20230113
  Transmission Date: 20230418
  Serious: Yes (Other)
  Sender: FDA-Public Use
  Company Number: BR-CELLTRION INC.-2023BR000457

PATIENT

DRUGS (9)
  1. INFLIXIMAB [Suspect]
     Active Substance: INFLIXIMAB
     Indication: Rheumatoid arthritis
     Dosage: 3 AMPOULES EVERY 2 MONTHS, AND THAT HER FIRST TWO INFUSIONS WERE 15 DAYS APART
     Route: 042
     Dates: start: 2022
  2. INFLIXIMAB [Suspect]
     Active Substance: INFLIXIMAB
     Dosage: 3 AMPOULES EVERY 2 MONTHS, AND THAT HER FIRST TWO INFUSIONS WERE 15 DAYS APART
     Route: 042
     Dates: start: 2022
  3. HYDROCHLOROTHIAZIDE [Concomitant]
     Active Substance: HYDROCHLOROTHIAZIDE
     Indication: Hypertension
     Dosage: 1 PILL/DAYSTART: 15 YEARS AGO
     Route: 048
  4. LOSARTAN [Concomitant]
     Active Substance: LOSARTAN
     Indication: Hypertension
     Dosage: 2 PILL/DAY START: 15 YEARS AGO
     Route: 048
  5. ASPIRIN [Concomitant]
     Active Substance: ASPIRIN
     Indication: Hypertension
     Dosage: 1 PILL/DAY START: 15 YEARS AGO
     Route: 048
  6. METHOTREXATE SODIUM [Concomitant]
     Active Substance: METHOTREXATE SODIUM
     Indication: Rheumatoid arthritis
     Dosage: 1 PILL/WEEK
     Route: 048
     Dates: start: 202206
  7. TRAMADOL [Concomitant]
     Active Substance: TRAMADOL
     Route: 042
  8. DEXAMETHASONE [Concomitant]
     Active Substance: DEXAMETHASONE
     Route: 042
  9. VOLTAREN [Concomitant]
     Active Substance: DICLOFENAC SODIUM
     Route: 042

REACTIONS (6)
  - Pain in extremity [Unknown]
  - Arthralgia [Unknown]
  - Furuncle [Unknown]
  - Viral infection [Recovered/Resolved with Sequelae]
  - Intentional dose omission [Unknown]
  - Off label use [Unknown]
